FAERS Safety Report 9115127 (Version 1)
Quarter: 2013Q1

REPORT INFORMATION
  Report Type: Spontaneous
  Country: GB (occurrence: None)
  Receive Date: 20130125
  Receipt Date: 20130125
  Transmission Date: 20140127
  Serious: Yes (Hospitalization)
  Sender: FDA-Public Use
  Company Number: GER/UKI/13/0027590

PATIENT
  Sex: Female

DRUGS (1)
  1. DONEPEZIL (DONEPEZIL) [Suspect]
     Indication: PRODUCT USED FOR UNKNOWN INDICATION
     Dosage: 10MG, 1 IN 1 D, ORAL
     Route: 048

REACTIONS (4)
  - Mania [None]
  - Elevated mood [None]
  - Overconfidence [None]
  - Poor quality sleep [None]
